FAERS Safety Report 18798429 (Version 1)
Quarter: 2021Q1

REPORT INFORMATION
  Report Type: Other
  Country: NL (occurrence: IN)
  Receive Date: 20210128
  Receipt Date: 20210128
  Transmission Date: 20210419
  Serious: Yes (Death, Other)
  Sender: FDA-Public Use
  Company Number: IN-ASTELLAS-2021US003188

PATIENT
  Age: 7 Year
  Sex: Male

DRUGS (3)
  1. AMPHOTERICIN B, LIPOSOME [Interacting]
     Active Substance: AMPHOTERICIN B
     Dosage: 0.5 MG/KG, ONCE DAILY
     Route: 041
  2. AMPHOTERICIN B, LIPOSOME [Suspect]
     Active Substance: AMPHOTERICIN B
     Indication: VISCERAL LEISHMANIASIS
     Dosage: 0.25 MG/KG, ONCE DAILY
     Route: 041
  3. SODIUM STIBOGLUCONATE [Suspect]
     Active Substance: SODIUM STIBOGLUCONATE
     Indication: VISCERAL LEISHMANIASIS
     Route: 030

REACTIONS (4)
  - Off label use [Unknown]
  - Ventricular tachycardia [Fatal]
  - Drug interaction [Unknown]
  - Shock [Unknown]
